FAERS Safety Report 19002548 (Version 1)
Quarter: 2021Q1

REPORT INFORMATION
  Report Type: Spontaneous
  Country: US (occurrence: US)
  Receive Date: 20210312
  Receipt Date: 20210312
  Transmission Date: 20210420
  Serious: No
  Sender: FDA-Public Use
  Company Number: US-ALLERGAN-2039439US

PATIENT
  Age: 73 Year
  Sex: Female

DRUGS (2)
  1. TAMOXIFIN [Concomitant]
     Active Substance: TAMOXIFEN
     Indication: BREAST CANCER
  2. ESTRACE [Suspect]
     Active Substance: ESTRADIOL
     Indication: ATROPHIC VULVOVAGINITIS
     Dosage: 2 G, QD
     Dates: start: 20200908

REACTIONS (2)
  - Device malfunction [Unknown]
  - Product administration error [Unknown]
